FAERS Safety Report 7832057-X (Version None)
Quarter: 2011Q4

REPORT INFORMATION
  Report Type: 
  Country: None (occurrence: None)
  Receive Date: 20111022
  Receipt Date: 20111017
  Transmission Date: 20120403
  Serious: Yes (Hospitalization)
  Sender: FDA-Public Use
  Company Number: US-VERTEX PHARMACEUTICALS INC.-AE-2011-002340

PATIENT
  Age: 62 Year
  Sex: Female

DRUGS (3)
  1. RIBAVIRIN [Concomitant]
     Indication: HEPATITIS C
     Dates: start: 20110101
  2. PEGASYS [Concomitant]
     Indication: HEPATITIS C
     Dates: start: 20110101
  3. INCIVEK [Suspect]
     Indication: HEPATITIS C
     Dates: start: 20110101

REACTIONS (2)
  - HAEMOGLOBIN DECREASED [None]
  - BLOOD SODIUM DECREASED [None]
